FAERS Safety Report 9077021 (Version 1)
Quarter: 2013Q1

REPORT INFORMATION
  Report Type: Spontaneous
  Country: US (occurrence: US)
  Receive Date: 20130130
  Receipt Date: 20130130
  Transmission Date: 20140127
  Serious: Yes (Other)
  Sender: FDA-Public Use
  Company Number: US-JNJFOC-20130113643

PATIENT
  Age: 19 Month
  Sex: Female
  Weight: 11.34 kg

DRUGS (2)
  1. BENADRYL CHILD ALLERGY LIQUID CHERRY [Suspect]
     Indication: PRODUCT USED FOR UNKNOWN INDICATION
     Route: 065
  2. DIMETAPP [Suspect]
     Indication: PRODUCT USED FOR UNKNOWN INDICATION
     Route: 065

REACTIONS (3)
  - Sedation [Unknown]
  - Incorrect route of drug administration [Unknown]
  - Drug administered to patient of inappropriate age [Unknown]
